FAERS Safety Report 4393893-8 (Version None)
Quarter: 2004Q3

REPORT INFORMATION
  Report Type: 
  Country: None (occurrence: None)
  Receive Date: 20040702
  Receipt Date: 20040623
  Transmission Date: 20050211
  Serious: Yes (Life-Threatening)
  Sender: FDA-Public Use
  Company Number: 04P-163-0264707-00

PATIENT
  Age: 14 Year
  Sex: Male

DRUGS (4)
  1. ULTANE [Suspect]
     Indication: INDUCTION OF ANAESTHESIA
     Dosage: 2 TO 8 PERCENT, ONCE, INHALATION
     Route: 055
     Dates: start: 20040601, end: 20040601
  2. FENTANYL [Concomitant]
  3. ISOFLURANE [Concomitant]
  4. NITROUS OXIDE [Concomitant]

REACTIONS (2)
  - BRADYCARDIA [None]
  - CARDIAC ARREST [None]
